FAERS Safety Report 7297907-7 (Version None)
Quarter: 2011Q1

REPORT INFORMATION
  Report Type: 
  Country: None (occurrence: None)
  Receive Date: 20110217
  Receipt Date: 20101209
  Transmission Date: 20110831
  Serious: No
  Sender: FDA-Public Use
  Company Number: US-KINGPHARMUSA00001-K201001502

PATIENT
  Age: 48 Year
  Sex: Male
  Weight: 90.703 kg

DRUGS (2)
  1. FLECTOR [Suspect]
     Indication: TENDONITIS
     Dosage: 1 PATCH, FIVE DAYS WEEKLY
     Route: 061
     Dates: start: 20100101, end: 20101204
  2. PERCOCET [Concomitant]
     Dosage: 5 MG, PRN, HS
     Route: 048

REACTIONS (3)
  - APPLICATION SITE PRURITUS [None]
  - APPLICATION SITE RASH [None]
  - APPLICATION SITE ERYTHEMA [None]
